FAERS Safety Report 24111713 (Version 9)
Quarter: 2025Q3

REPORT INFORMATION
  Report Type: Spontaneous
  Country: EU (occurrence: EU)
  Receive Date: 20240718
  Receipt Date: 20250718
  Transmission Date: 20251020
  Serious: Yes (Disabling, Other)
  Sender: ABBVIE
  Company Number: EU-LUNDBECK-DKLU3052570

PATIENT
  Age: 34 Year
  Sex: Female
  Weight: 57 kg

DRUGS (6)
  1. CIPRALEX [Suspect]
     Active Substance: ESCITALOPRAM OXALATE
     Indication: Panic attack
     Route: 048
     Dates: start: 201412, end: 20220222
  2. CIPRALEX [Suspect]
     Active Substance: ESCITALOPRAM OXALATE
     Indication: Panic attack
     Route: 048
     Dates: start: 20140110
  3. CIPRALEX [Suspect]
     Active Substance: ESCITALOPRAM OXALATE
     Indication: Panic attack
     Route: 048
     Dates: start: 20221018
  4. Vertigo vomex [Concomitant]
     Indication: Migraine
  5. ACETAMINOPHEN [Concomitant]
     Active Substance: ACETAMINOPHEN
     Indication: Product used for unknown indication
  6. ASIAN GINSENG [Concomitant]
     Active Substance: ASIAN GINSENG
     Indication: Product used for unknown indication

REACTIONS (51)
  - Illusion [Not Recovered/Not Resolved]
  - Cerebral disorder [Unknown]
  - Nervous system disorder [Unknown]
  - Peripheral vascular disorder [Unknown]
  - Bedridden [Not Recovered/Not Resolved]
  - Autoimmune disorder [Not Recovered/Not Resolved]
  - Anhedonia [Not Recovered/Not Resolved]
  - Feeling hot [Recovered/Resolved]
  - Cognitive disorder [Not Recovered/Not Resolved]
  - Condition aggravated [Unknown]
  - Vitreous detachment [Not Recovered/Not Resolved]
  - Repetitive speech [Recovered/Resolved]
  - Learning disorder [Unknown]
  - Speech disorder [Not Recovered/Not Resolved]
  - Eye movement disorder [Not Recovered/Not Resolved]
  - Crying [Not Recovered/Not Resolved]
  - Neuralgia [Not Recovered/Not Resolved]
  - Streptococcal infection [Not Recovered/Not Resolved]
  - Unevaluable event [Not Recovered/Not Resolved]
  - Migraine with aura [Unknown]
  - Dysphagia [Not Recovered/Not Resolved]
  - Hyperhidrosis [Unknown]
  - Dysphagia [Not Recovered/Not Resolved]
  - Arthralgia [Unknown]
  - Amnesia [Not Recovered/Not Resolved]
  - Electroencephalogram abnormal [Unknown]
  - Maternal exposure during pregnancy [Unknown]
  - Neurodegenerative disorder [Unknown]
  - Amnesia [Not Recovered/Not Resolved]
  - Fatigue [Unknown]
  - Visual impairment [Not Recovered/Not Resolved]
  - Vertigo [Not Recovered/Not Resolved]
  - Reflux gastritis [Not Recovered/Not Resolved]
  - Aggression [Not Recovered/Not Resolved]
  - Depressive symptom [Not Recovered/Not Resolved]
  - Pyrexia [Not Recovered/Not Resolved]
  - Blood pressure abnormal [Not Recovered/Not Resolved]
  - Postural orthostatic tachycardia syndrome [Not Recovered/Not Resolved]
  - Feeling abnormal [Not Recovered/Not Resolved]
  - Palpitations [Not Recovered/Not Resolved]
  - Withdrawal syndrome [Unknown]
  - Blood bilirubin increased [Recovered/Resolved]
  - Deafness [Unknown]
  - General physical health deterioration [Unknown]
  - Dementia [Unknown]
  - Treatment noncompliance [Unknown]
  - Intentional product use issue [Unknown]
  - Red blood cell sedimentation rate increased [Recovered/Resolved]
  - Alopecia [Unknown]
  - Sexual dysfunction [Unknown]
  - Nail discolouration [Unknown]

NARRATIVE: CASE EVENT DATE: 20160508
